FAERS Safety Report 4657429-6 (Version None)
Quarter: 2005Q2

REPORT INFORMATION
  Report Type: 
  Country: None (occurrence: None)
  Receive Date: 20050509
  Receipt Date: 20050509
  Transmission Date: 20051028
  Serious: Yes (Hospitalization)
  Sender: FDA-Public Use
  Company Number: None

PATIENT
  Age: 52 Year
  Sex: Female
  Weight: 72.5755 kg

DRUGS (3)
  1. CARBOPLATIN [Suspect]
     Dosage: 124 MG IV WEEKLY X 4
     Route: 042
  2. PACLITAXEL [Suspect]
     Dosage: 72.8 MG IV WEEKLY X 4
     Route: 042
  3. CETUXIMAB 250 MG AND 400 MG/M2 [Suspect]
     Dosage: 455 MG IV WEEKLY X 8; 724 IV WEEKLY X 1
     Route: 042

REACTIONS (4)
  - ACTIVITIES OF DAILY LIVING IMPAIRED [None]
  - DEHYDRATION [None]
  - MUCOSAL INFLAMMATION [None]
  - SALIVA ALTERED [None]
